FAERS Safety Report 15283339 (Version 1)
Quarter: 2018Q3

REPORT INFORMATION
  Report Type: Spontaneous
  Country: US (occurrence: US)
  Receive Date: 20180816
  Receipt Date: 20180816
  Transmission Date: 20181010
  Serious: No
  Sender: FDA-Public Use
  Company Number: US-PFIZER INC-2018329255

PATIENT
  Age: 47 Year
  Sex: Female
  Weight: 36.28 kg

DRUGS (4)
  1. DOCETAXEL. [Suspect]
     Active Substance: DOCETAXEL
     Indication: BREAST CANCER
     Dosage: UNK UNK, EVERY 3 WEEKS
     Dates: start: 20131224, end: 20141224
  2. NEULASTA [Concomitant]
     Active Substance: PEGFILGRASTIM
     Indication: BREAST CANCER
  3. HERCEPTIN [Concomitant]
     Active Substance: TRASTUZUMAB
     Indication: BREAST CANCER
  4. CARBOPLATIN. [Concomitant]
     Active Substance: CARBOPLATIN
     Indication: BREAST CANCER

REACTIONS (1)
  - Alopecia [Unknown]

NARRATIVE: CASE EVENT DATE: 201312
